FAERS Safety Report 16913671 (Version 1)
Quarter: 2019Q4

REPORT INFORMATION
  Report Type: Spontaneous
  Country: US (occurrence: US)
  Receive Date: 20190821
  Receipt Date: 20190821
  Transmission Date: 20200122
  Serious: Yes (Hospitalization)
  Sender: FDA-Public Use
  Company Number: None

PATIENT
  Age: 62 Year
  Sex: Female
  Weight: 99.3 kg

DRUGS (2)
  1. ABRAXANE [Suspect]
     Active Substance: PACLITAXEL
     Indication: METASTATIC MALIGNANT MELANOMA
     Dosage: ?          OTHER FREQUENCY:1WEEKLY 28 DAY CYC;?
     Route: 042
     Dates: start: 20190416, end: 20190816
  2. BEVNCIZUMNB [Suspect]
     Active Substance: BEVACIZUMAB
     Indication: METASTATIC MALIGNANT MELANOMA
     Dosage: ?          OTHER FREQUENCY:1WEEKLYX328DAY;?
     Route: 042

REACTIONS (9)
  - Pyrexia [None]
  - Diverticulitis [None]
  - Large intestine perforation [None]
  - Constipation [None]
  - Intra-abdominal fluid collection [None]
  - Vomiting [None]
  - Chills [None]
  - Diarrhoea [None]
  - Nausea [None]

NARRATIVE: CASE EVENT DATE: 20190820
